FAERS Safety Report 6453313-6 (Version None)
Quarter: 2009Q4

REPORT INFORMATION
  Report Type: 
  Country: None (occurrence: None)
  Receive Date: 20091124
  Receipt Date: 20091116
  Transmission Date: 20100525
  Serious: Yes (Life-Threatening, Hospitalization)
  Sender: FDA-Public Use
  Company Number: DE-AMGEN-US365720

PATIENT
  Age: 49 Year
  Sex: Female

DRUGS (1)
  1. ENBREL [Suspect]
     Indication: RHEUMATOID ARTHRITIS
     Dosage: 50 MG PER WEEK
     Route: 058
     Dates: start: 20080101

REACTIONS (2)
  - CHOLANGITIS SUPPURATIVE [None]
  - PLEURISY [None]
